FAERS Safety Report 8329657-X (Version None)
Quarter: 2012Q2

REPORT INFORMATION
  Report Type: 
  Country: None (occurrence: None)
  Receive Date: 20120502
  Receipt Date: 20120426
  Transmission Date: 20120825
  Serious: Yes (Hospitalization)
  Sender: FDA-Public Use
  Company Number: US-GLAXOSMITHKLINE-A0863315A

PATIENT
  Age: 47 Year
  Sex: Female

DRUGS (1)
  1. AVANDIA [Suspect]
     Indication: DIABETES MELLITUS
     Dosage: 10MG TWICE PER DAY
     Route: 048
     Dates: start: 20020319, end: 20050819

REACTIONS (2)
  - CEREBROVASCULAR ACCIDENT [None]
  - ANGINA UNSTABLE [None]
